FAERS Safety Report 9753317 (Version 4)
Quarter: 2014Q1

REPORT INFORMATION
  Report Type: Spontaneous
  Country: IT (occurrence: IT)
  Receive Date: 20131213
  Receipt Date: 20140206
  Transmission Date: 20141002
  Serious: Yes (Hospitalization)
  Sender: FDA-Public Use
  Company Number: IT-PFIZER INC-2013353477

PATIENT
  Age: 70 Year
  Sex: Female

DRUGS (5)
  1. GABAPENTIN [Suspect]
     Indication: SUICIDE ATTEMPT
     Dosage: 14 DF, UNK
     Route: 048
     Dates: start: 20131108, end: 20131108
  2. ACETAMOL [Suspect]
     Indication: SUICIDE ATTEMPT
     Dosage: 4 DF, UNK
     Route: 048
     Dates: start: 20131108, end: 20131108
  3. PALEXIA [Suspect]
     Indication: SUICIDE ATTEMPT
     Dosage: 9 DF, UNK
     Route: 048
     Dates: start: 20131108, end: 20131108
  4. RISEDRONATE SODIUM [Suspect]
     Indication: SUICIDE ATTEMPT
     Dosage: 3 DF, UNK
     Route: 048
     Dates: start: 20131108, end: 20131108
  5. PATROL [Suspect]
     Indication: SUICIDE ATTEMPT
     Dosage: 7 DF, UNK
     Route: 048
     Dates: start: 20131108, end: 20131108

REACTIONS (4)
  - Off label use [Recovered/Resolved]
  - Confusional state [Recovered/Resolved]
  - Depressed level of consciousness [Recovered/Resolved]
  - Drug abuse [Recovered/Resolved]
